FAERS Safety Report 4370753-X (Version None)
Quarter: 2004Q2

REPORT INFORMATION
  Report Type: 
  Country: None (occurrence: None)
  Receive Date: 20040527
  Receipt Date: 20040511
  Transmission Date: 20050107
  Serious: Yes (Disabling)
  Sender: FDA-Public Use
  Company Number: JP_040503128

PATIENT
  Age: 77 Year
  Sex: Male
  Weight: 52 kg

DRUGS (4)
  1. ONCOVIN [Suspect]
     Indication: LYMPHOMA
     Dosage: 1.5 MG OTHER
     Route: 050
     Dates: start: 20030905, end: 20040130
  2. CYCLOPHOSPHAMIDE [Concomitant]
  3. NOVANTRON (MITOXANTRONE HYDROCHLORIDE0 [Concomitant]
  4. PREDNISOLONE [Concomitant]

REACTIONS (3)
  - DISEASE RECURRENCE [None]
  - LYMPHOMA [None]
  - VOCAL CORD PARALYSIS [None]
